FAERS Safety Report 8249295-7 (Version None)
Quarter: 2012Q1

REPORT INFORMATION
  Report Type: 
  Country: None (occurrence: None)
  Receive Date: 20120327
  Receipt Date: 20120322
  Transmission Date: 20120608
  Serious: Yes (Death, Life-Threatening, Hospitalization, Disabling)
  Sender: FDA-Public Use
  Company Number: 2011SP058154

PATIENT
  Age: 24 Year
  Sex: Female

DRUGS (1)
  1. NUVARING [Suspect]
     Indication: CONTRACEPTION
     Dosage: QM;VAG
     Route: 067

REACTIONS (5)
  - BRAIN DEATH [None]
  - MYOCARDIAL INFARCTION [None]
  - THROMBOSIS [None]
  - SCREAMING [None]
  - PULMONARY EMBOLISM [None]
